FAERS Safety Report 9591521 (Version 1)
Quarter: 2013Q4

REPORT INFORMATION
  Report Type: Spontaneous
  Country: US (occurrence: US)
  Receive Date: 20131003
  Receipt Date: 20131003
  Transmission Date: 20140711
  Serious: No
  Sender: FDA-Public Use
  Company Number: US-AMGEN-USASP2012081925

PATIENT
  Age: 36 Year
  Sex: Female

DRUGS (5)
  1. ENBREL [Suspect]
     Indication: RHEUMATOID ARTHRITIS
     Dosage: 50 MG, QWK
     Dates: start: 20121207
  2. METHOTREXATE [Concomitant]
     Dosage: 20 MG, QWK
     Dates: start: 20120327
  3. PLAQUENIL                          /00072602/ [Concomitant]
     Dosage: UNK 1 TAB, BID
     Dates: start: 201206
  4. SULFASALAZINE [Concomitant]
     Dosage: UNK 4 TABS, QD
     Dates: start: 201206
  5. PREDNISONE [Concomitant]
     Dosage: 5 TO 2.5 MG, QD
     Dates: start: 201203

REACTIONS (1)
  - Injection site pain [Not Recovered/Not Resolved]
